FAERS Safety Report 4822580-4 (Version None)
Quarter: 2005Q4

REPORT INFORMATION
  Report Type: 
  Country: None (occurrence: None)
  Receive Date: 20051104
  Receipt Date: 20051021
  Transmission Date: 20060501
  Serious: Yes (Hospitalization)
  Sender: FDA-Public Use
  Company Number: 2005-0008844

PATIENT
  Age: 69 Year
  Sex: Male

DRUGS (10)
  1. HEPSERA [Suspect]
     Indication: HEPATITIS B
     Dosage: 10 MG, 1 IN 1 D, ORAL
     Route: 048
     Dates: start: 20031113
  2. ZEFFIX                          (LAMIVUDINE) [Suspect]
     Indication: HEPATITIS B
     Dosage: 100 MG, ORAL
     Route: 048
     Dates: start: 20011023
  3. WARFARIN SODIUM [Concomitant]
  4. ANPLAG                         (SARPOGRELATE HYDROCHLORIDE) [Concomitant]
  5. SELBEX                       (TEPRENONE) [Concomitant]
  6. DIART            (AZOSEMIDE) [Concomitant]
  7. DIGOXIN [Concomitant]
  8. FAMOTIDINE [Concomitant]
  9. ALDACTONE [Concomitant]
  10. SLOW-K [Concomitant]

REACTIONS (1)
  - HEPATIC NEOPLASM MALIGNANT [None]
